FAERS Safety Report 12599544 (Version 2)
Quarter: 2016Q3

REPORT INFORMATION
  Report Type: Report from Study
  Country: CA (occurrence: CA)
  Receive Date: 20160727
  Receipt Date: 20160803
  Transmission Date: 20161109
  Serious: Yes (Hospitalization)
  Sender: FDA-Public Use
  Company Number: CA-COVIS PHARMA S.A.R.L.-2016COV00059

PATIENT
  Age: 56 Year
  Sex: Female

DRUGS (1)
  1. RILUTEK [Suspect]
     Active Substance: RILUZOLE
     Indication: AMYOTROPHIC LATERAL SCLEROSIS
     Dosage: 2 TABLETS, 1X/DAY
     Route: 048
     Dates: start: 201502

REACTIONS (4)
  - Peripheral embolism [Unknown]
  - Asthenia [Unknown]
  - Pulmonary embolism [Unknown]
  - Nausea [Unknown]

NARRATIVE: CASE EVENT DATE: 20160709
